FAERS Safety Report 16283077 (Version 2)
Quarter: 2021Q1

REPORT INFORMATION
  Report Type: Spontaneous
  Country: US (occurrence: US)
  Receive Date: 20190507
  Receipt Date: 20210120
  Transmission Date: 20210419
  Serious: Yes (Other)
  Sender: FDA-Public Use
  Company Number: US-ASTRAZENECA-2019SE65570

PATIENT
  Age: 9952 Day
  Sex: Female

DRUGS (37)
  1. PRILOSEC [Suspect]
     Active Substance: OMEPRAZOLE MAGNESIUM
     Indication: GASTROOESOPHAGEAL REFLUX DISEASE
     Dosage: GENERIC
     Route: 065
     Dates: start: 201402, end: 201706
  2. CIPROFLOXACIN. [Concomitant]
     Active Substance: CIPROFLOXACIN
  3. COLCHICINE. [Concomitant]
     Active Substance: COLCHICINE
  4. DOXEPIN [Concomitant]
     Active Substance: DOXEPIN
  5. TRAMADOL. [Concomitant]
     Active Substance: TRAMADOL
     Indication: PAIN
     Dates: start: 2010
  6. OXYCODONE [Concomitant]
     Active Substance: OXYCODONE
  7. NITROFURANTOIN. [Concomitant]
     Active Substance: NITROFURANTOIN
  8. VOLTAREN [Concomitant]
     Active Substance: DICLOFENAC SODIUM
  9. KETOPROFEN. [Concomitant]
     Active Substance: KETOPROFEN
  10. OXYBUTYNIN. [Concomitant]
     Active Substance: OXYBUTYNIN CHLORIDE
  11. PROMETHAZINE [Concomitant]
     Active Substance: PROMETHAZINE HYDROCHLORIDE
  12. DOCUSATE SODIUM. [Concomitant]
     Active Substance: DOCUSATE SODIUM
  13. PREVACID [Suspect]
     Active Substance: LANSOPRAZOLE
     Indication: GASTROOESOPHAGEAL REFLUX DISEASE
     Dosage: GENERIC
     Route: 065
     Dates: start: 20100615
  14. TRIMOX [Concomitant]
     Active Substance: AMOXICILLIN
  15. DOXEPIN [Concomitant]
     Active Substance: DOXEPIN
  16. METFORMIN [Concomitant]
     Active Substance: METFORMIN HYDROCHLORIDE
  17. WARFARIN [Concomitant]
     Active Substance: WARFARIN
  18. HYDROCODONE/ACETAMINOPHEN [Concomitant]
     Active Substance: ACETAMINOPHEN\HYDROCODONE
  19. CEPHALEXIN. [Concomitant]
     Active Substance: CEPHALEXIN
  20. METHOCARBAMOL. [Concomitant]
     Active Substance: METHOCARBAMOL
  21. FLUOXETINE [Concomitant]
     Active Substance: FLUOXETINE HYDROCHLORIDE
  22. AMOXICILLIN. [Concomitant]
     Active Substance: AMOXICILLIN
  23. METOPROLOL. [Concomitant]
     Active Substance: METOPROLOL
  24. PRILOSEC [Suspect]
     Active Substance: OMEPRAZOLE MAGNESIUM
     Indication: GASTROOESOPHAGEAL REFLUX DISEASE
     Route: 048
     Dates: start: 201003, end: 201708
  25. TRAMADOL. [Concomitant]
     Active Substance: TRAMADOL
     Indication: PAIN
     Dates: start: 2008
  26. PHENTERMINE. [Concomitant]
     Active Substance: PHENTERMINE
  27. DIFLUCAN [Concomitant]
     Active Substance: FLUCONAZOLE
  28. SONATA [Concomitant]
     Active Substance: ZALEPLON
  29. LEVOTHYROXIN [Concomitant]
     Active Substance: LEVOTHYROXINE
  30. BACLOFEN. [Concomitant]
     Active Substance: BACLOFEN
  31. CLONAZEPAM. [Concomitant]
     Active Substance: CLONAZEPAM
  32. AMBIEN [Concomitant]
     Active Substance: ZOLPIDEM TARTRATE
  33. ZOLPIDEM [Concomitant]
     Active Substance: ZOLPIDEM TARTRATE
  34. IBUPROFEN. [Concomitant]
     Active Substance: IBUPROFEN
  35. SUMATRIPTAN. [Concomitant]
     Active Substance: SUMATRIPTAN
  36. FEXOFENADINE [Concomitant]
     Active Substance: FEXOFENADINE HYDROCHLORIDE
  37. VITAMIN D2 [Concomitant]
     Active Substance: ERGOCALCIFEROL

REACTIONS (2)
  - Chronic kidney disease [Unknown]
  - Acute kidney injury [Not Recovered/Not Resolved]

NARRATIVE: CASE EVENT DATE: 20120115
